FAERS Safety Report 17246825 (Version 1)
Quarter: 2020Q1

REPORT INFORMATION
  Report Type: Spontaneous
  Country: US (occurrence: US)
  Receive Date: 20200108
  Receipt Date: 20200108
  Transmission Date: 20200409
  Serious: No
  Sender: FDA-Public Use
  Company Number: US-PFIZER INC-2020002025

PATIENT
  Sex: Female

DRUGS (3)
  1. XELJANZ [Suspect]
     Active Substance: TOFACITINIB CITRATE
     Dosage: 5 MG, 2X/DAY
     Route: 048
     Dates: start: 201910
  2. LYRICA [Concomitant]
     Active Substance: PREGABALIN
     Dosage: UNK
  3. GABAPENTIN. [Concomitant]
     Active Substance: GABAPENTIN
     Dosage: UNK

REACTIONS (4)
  - Herpes zoster [Unknown]
  - Pruritus [Not Recovered/Not Resolved]
  - Scratch [Not Recovered/Not Resolved]
  - Skin haemorrhage [Not Recovered/Not Resolved]

NARRATIVE: CASE EVENT DATE: 2019
